FAERS Safety Report 11528441 (Version 1)
Quarter: 2015Q3

REPORT INFORMATION
  Report Type: Spontaneous
  Country: US (occurrence: US)
  Receive Date: 20150921
  Receipt Date: 20150921
  Transmission Date: 20151125
  Serious: No
  Sender: FDA-Public Use
  Company Number: US-TEVA-567166USA

PATIENT
  Sex: Male
  Weight: 78 kg

DRUGS (11)
  1. VIAGRA [Suspect]
     Active Substance: SILDENAFIL CITRATE
     Dosage: MAYBE 3-4 TIMES A MONTH
     Route: 065
  2. SIMVASTATIN. [Concomitant]
     Active Substance: SIMVASTATIN
     Dosage: 40 MILLIGRAM DAILY; AT NIGHT
  3. MULTIVITAMIN [Concomitant]
     Active Substance: VITAMINS
  4. ROPINIROLE. [Concomitant]
     Active Substance: ROPINIROLE
     Dosage: 1 MILLIGRAM DAILY; 0.5MG AT 4PM AND 0.5MG AT 10PM
  5. CALCIUM W/VITAMIN D NOS [Concomitant]
     Active Substance: CALCIUM\VITAMIN D
     Dosage: 600 MILLIGRAM DAILY;
  6. ROPINIROLE. [Concomitant]
     Active Substance: ROPINIROLE
     Dosage: 1 MILLIGRAM DAILY; AT 8AM
  7. CLONAZEPAM. [Suspect]
     Active Substance: CLONAZEPAM
     Dosage: HIGHER THAN 1MG
     Route: 065
  8. CLONAZEPAM. [Suspect]
     Active Substance: CLONAZEPAM
     Dosage: 1 MILLIGRAM DAILY; AT NIGHT
     Route: 065
  9. VITAMIN B12 [Concomitant]
     Active Substance: CYANOCOBALAMIN
     Dosage: 1000 MICROGRAM DAILY;
     Route: 060
  10. VITAMIN B3 [Concomitant]
     Active Substance: NIACIN
     Dosage: 2000 IU (INTERNATIONAL UNIT) DAILY;
  11. MAGNESIUM [Concomitant]
     Active Substance: MAGNESIUM
     Dosage: 250 MILLIGRAM DAILY;

REACTIONS (1)
  - Erectile dysfunction [Recovered/Resolved]
